FAERS Safety Report 22341013 (Version 1)
Quarter: 2023Q2

REPORT INFORMATION
  Report Type: Spontaneous
  Country: JP (occurrence: None)
  Receive Date: 20230518
  Receipt Date: 20230518
  Transmission Date: 20230722
  Serious: Yes (Hospitalization)
  Sender: FDA-Public Use
  Company Number: 2023A111054

PATIENT
  Age: 60 Year
  Sex: Female

DRUGS (3)
  1. LYNPARZA [Suspect]
     Active Substance: OLAPARIB
     Indication: Ovarian cancer
     Route: 048
     Dates: start: 202205
  2. LYNPARZA [Suspect]
     Active Substance: OLAPARIB
     Indication: Ovarian cancer
     Dosage: DOSE UNKNOWN
     Route: 048
  3. AVASTIN [Suspect]
     Active Substance: BEVACIZUMAB
     Indication: Ovarian cancer
     Dosage: DOSE UNKNOWN
     Dates: start: 202205, end: 202305

REACTIONS (1)
  - Vesical fistula [Recovering/Resolving]

NARRATIVE: CASE EVENT DATE: 20230401
